FAERS Safety Report 9433710 (Version 1)
Quarter: 2013Q3

REPORT INFORMATION
  Report Type: Spontaneous
  Country: US (occurrence: US)
  Receive Date: 20130731
  Receipt Date: 20130731
  Transmission Date: 20140515
  Serious: No
  Sender: FDA-Public Use
  Company Number: US-009507513-1307USA015859

PATIENT
  Sex: Male

DRUGS (2)
  1. LOTRIMIN ULTRA [Suspect]
     Indication: TINEA PEDIS
     Dosage: UNK, PRN
     Route: 061
  2. LOTRIMIN ULTRA [Suspect]
     Indication: RASH

REACTIONS (2)
  - Condition aggravated [Unknown]
  - Drug effect decreased [Unknown]
